FAERS Safety Report 10969899 (Version 1)
Quarter: 2015Q1

REPORT INFORMATION
  Report Type: Other
  Country: GB (occurrence: GB)
  Receive Date: 20150331
  Receipt Date: 20150331
  Transmission Date: 20150721
  Serious: Yes (Disabling, Other)
  Sender: FDA-Public Use
  Company Number: GB-MYLANLABS-2015M1008798

PATIENT

DRUGS (4)
  1. MORPHINE [Concomitant]
     Active Substance: MORPHINE
     Dosage: UNK
  2. TAMOXIFEN [Suspect]
     Active Substance: TAMOXIFEN
     Indication: BREAST CANCER FEMALE
     Dosage: 20 MG, UNK
     Route: 048
     Dates: start: 20111021, end: 2011
  3. GABAPENTIN. [Concomitant]
     Active Substance: GABAPENTIN
     Dosage: UNK
  4. NEFOPAM [Concomitant]
     Active Substance: NEFOPAM
     Dosage: UNK

REACTIONS (5)
  - Vision blurred [Recovering/Resolving]
  - Halo vision [Recovering/Resolving]
  - Body temperature increased [Unknown]
  - Diplopia [Recovering/Resolving]
  - Hot flush [Unknown]

NARRATIVE: CASE EVENT DATE: 20111021
